FAERS Safety Report 24097564 (Version 2)
Quarter: 2024Q3

REPORT INFORMATION
  Report Type: Spontaneous
  Country: US (occurrence: US)
  Receive Date: 20240716
  Receipt Date: 20240724
  Transmission Date: 20241016
  Serious: Yes (Hospitalization, Other)
  Sender: DR REDDYS
  Company Number: US-MLMSERVICE-20240703-PI117838-00229-1

PATIENT
  Age: 66 Year
  Sex: Female

DRUGS (4)
  1. OXYCODONE [Suspect]
     Active Substance: OXYCODONE
     Indication: Pain
     Dosage: IMMEDIATE-RELEASE
  2. MORPHINE [Suspect]
     Active Substance: MORPHINE
     Indication: Pain
     Dosage: EXTENDED-RELEASE
  3. NALOXONE [Suspect]
     Active Substance: NALOXONE
     Indication: Overdose
     Route: 042
  4. NALOXONE [Suspect]
     Active Substance: NALOXONE
     Indication: Overdose
     Route: 045

REACTIONS (7)
  - Non-cardiogenic pulmonary oedema [Recovering/Resolving]
  - Lethargy [Recovered/Resolved]
  - Hypoxia [Recovered/Resolved]
  - Blood pressure decreased [Recovered/Resolved]
  - Mental status changes [Recovered/Resolved]
  - Overdose [Recovered/Resolved]
  - Withdrawal syndrome [Unknown]
